FAERS Safety Report 17912366 (Version 1)
Quarter: 2020Q2

REPORT INFORMATION
  Report Type: Spontaneous
  Country: US (occurrence: US)
  Receive Date: 20200618
  Receipt Date: 20200618
  Transmission Date: 20200714
  Serious: Yes (Other)
  Sender: FDA-Public Use
  Company Number: None

PATIENT
  Age: 44 Year
  Sex: Male

DRUGS (18)
  1. TEMOZOLOMIDE. [Suspect]
     Active Substance: TEMOZOLOMIDE
     Indication: GLIOBLASTOMA MULTIFORME
     Route: 048
     Dates: start: 20200529, end: 20200610
  2. ATORVASTATIN 20MG [Concomitant]
     Active Substance: ATORVASTATIN
  3. DEXAMTHASONE 4MG [Concomitant]
  4. BACTRIM 400-80MG [Concomitant]
  5. TOPIRAMATE 25MG [Concomitant]
     Active Substance: TOPIRAMATE
  6. BUSPAR 10MG [Concomitant]
  7. FLOMAX .4MG [Concomitant]
  8. SERTRALINE 50MG [Concomitant]
     Active Substance: SERTRALINE HYDROCHLORIDE
  9. ZOFRAN 8MG [Concomitant]
  10. TEMOZOLOMIDE. [Suspect]
     Active Substance: TEMOZOLOMIDE
     Indication: BRAIN NEOPLASM MALIGNANT
     Route: 048
     Dates: start: 20200529, end: 20200610
  11. AMBIEN [Concomitant]
     Active Substance: ZOLPIDEM TARTRATE
  12. GABAPENTIN 600MG [Concomitant]
     Active Substance: GABAPENTIN
  13. KEPPRA [Concomitant]
     Active Substance: LEVETIRACETAM
  14. SEROQUEL [Concomitant]
     Active Substance: QUETIAPINE FUMARATE
  15. TRAZODONE [Concomitant]
     Active Substance: TRAZODONE HYDROCHLORIDE
  16. LEVOTHYROXINE 0.025MG [Concomitant]
  17. OMEPRAZOLE 20MG [Concomitant]
     Active Substance: OMEPRAZOLE
  18. SPIRONOLACTONE 25MG [Concomitant]
     Active Substance: SPIRONOLACTONE

REACTIONS (2)
  - Therapy interrupted [None]
  - Neutropenia [None]

NARRATIVE: CASE EVENT DATE: 20200610
